FAERS Safety Report 25740295 (Version 1)
Quarter: 2025Q3

REPORT INFORMATION
  Report Type: Spontaneous
  Country: US (occurrence: None)
  Receive Date: 20250828
  Receipt Date: 20250828
  Transmission Date: 20251021
  Serious: Yes (Disabling)
  Sender: FDA-CTU
  Company Number: None

PATIENT
  Age: 66 Year
  Sex: Male
  Weight: 117 kg

DRUGS (3)
  1. GLIMEPIRIDE [Suspect]
     Active Substance: GLIMEPIRIDE
     Indication: Type 2 diabetes mellitus
     Dosage: OTHER QUANTITY : 1 TABLET(S);?FREQUENCY : DAILY;?
     Route: 048
     Dates: start: 20240701, end: 20250801
  2. LISINOPRIL [Concomitant]
     Active Substance: LISINOPRIL
  3. Baby Aspirin 81mg [Concomitant]

REACTIONS (6)
  - Blister [None]
  - Pruritus [None]
  - Stasis dermatitis [None]
  - Peripheral swelling [None]
  - Nephrolithiasis [None]
  - Therapy cessation [None]

NARRATIVE: CASE EVENT DATE: 20240701
